FAERS Safety Report 9922565 (Version 2)
Quarter: 2014Q2

REPORT INFORMATION
  Report Type: Spontaneous
  Country: JP (occurrence: JP)
  Receive Date: 20140225
  Receipt Date: 20140623
  Transmission Date: 20141212
  Serious: Yes (Death, Hospitalization, Other)
  Sender: FDA-Public Use
  Company Number: PHHY2014JP020209

PATIENT
  Age: 70 Year
  Sex: Male

DRUGS (5)
  1. SANDOSTATIN LAR [Suspect]
     Indication: ACROMEGALY
     Route: 030
     Dates: start: 200701, end: 200702
  2. CYTARABINE [Suspect]
     Indication: ACUTE MYELOID LEUKAEMIA
  3. IDARUBICIN [Suspect]
     Indication: ACUTE MYELOID LEUKAEMIA
  4. MITOXANTRONE [Suspect]
     Indication: ACUTE MYELOID LEUKAEMIA
  5. VP-16 [Suspect]
     Indication: ACUTE MYELOID LEUKAEMIA

REACTIONS (8)
  - Multi-organ failure [Fatal]
  - Candida sepsis [Fatal]
  - Acute myeloid leukaemia [Not Recovered/Not Resolved]
  - Myelodysplastic syndrome [Unknown]
  - Refractory anaemia with an excess of blasts [Unknown]
  - Neutropenia [Unknown]
  - Cytogenetic abnormality [Unknown]
  - Drug ineffective [Unknown]
